FAERS Safety Report 7333275-X (Version None)
Quarter: 2011Q1

REPORT INFORMATION
  Report Type: 
  Country: None (occurrence: None)
  Receive Date: 20110222
  Receipt Date: 20110208
  Transmission Date: 20110831
  Serious: Yes (Other)
  Sender: FDA-Public Use
  Company Number: 2011AP000236

PATIENT
  Age: 51 Year
  Sex: Female

DRUGS (11)
  1. LEVOTHYROXINE SODIUM [Concomitant]
  2. VORICONAZOLE (VORICONZAOLE) [Suspect]
     Indication: FUNGAL INFECTION
     Dosage: 100 MG; BID
     Route: 048
     Dates: start: 20020101, end: 20101001
  3. CLARITHROMYCIN [Concomitant]
  4. ESTRADIOL [Concomitant]
  5. LANSOPRAZOLE [Concomitant]
  6. TRIMETHOPRIM [Concomitant]
  7. SULFAMETHOXAZOLE [Concomitant]
  8. OXYTETRACYCLINE [Concomitant]
  9. BENDROGLUMETHIAZIDE (BENDROFLUMETHIAZIDE) [Concomitant]
  10. MYCOPHENOLATE MOFETIL [Suspect]
     Indication: GRAFT VERSUS HOST DISEASE
     Dosage: 1 GM; BID
     Route: 048
     Dates: start: 20040101
  11. URSODIOL [Concomitant]

REACTIONS (3)
  - DYSPLASIA [None]
  - SKIN CANCER [None]
  - ACTINIC KERATOSIS [None]
